FAERS Safety Report 23139763 (Version 1)
Quarter: 2023Q4

REPORT INFORMATION
  Report Type: Report from Study
  Country: US (occurrence: US)
  Receive Date: 20231102
  Receipt Date: 20231102
  Transmission Date: 20240110
  Serious: Yes (Other)
  Sender: FDA-Public Use
  Company Number: US-ABBVIE-5475633

PATIENT
  Sex: Female

DRUGS (1)
  1. HUMIRA [Suspect]
     Active Substance: ADALIMUMAB
     Indication: Product used for unknown indication
     Dosage: FORM STRENGTH: 40 MILLIGRAMS ?CITRATE FREE
     Route: 058
     Dates: start: 20210414

REACTIONS (5)
  - Nasal septum deviation [Recovering/Resolving]
  - Injection site nodule [Recovered/Resolved]
  - Nasal turbinate hypertrophy [Recovering/Resolving]
  - Weight decreased [Unknown]
  - Hyperaesthesia [Unknown]
